FAERS Safety Report 4954461-X (Version None)
Quarter: 2006Q1

REPORT INFORMATION
  Report Type: 
  Country: None (occurrence: None)
  Receive Date: 20060321
  Receipt Date: 20060307
  Transmission Date: 20060701
  Serious: Yes (Hospitalization, Other)
  Sender: FDA-Public Use
  Company Number: 8015373

PATIENT
  Age: 49 Year
  Sex: Female

DRUGS (5)
  1. KEPPRA [Suspect]
     Indication: EPILEPSY
     Dosage: 500 MG 2/D PO
     Route: 048
     Dates: start: 20051105, end: 20051205
  2. KEPPRA [Suspect]
     Indication: EPILEPSY
     Dosage: 1000 MG 2/D PO
     Route: 048
     Dates: start: 20051206, end: 20060224
  3. CARBAMAZEPINE [Suspect]
     Indication: EPILEPSY
     Dosage: 800 MG /D PO
     Route: 048
     Dates: end: 20060224
  4. VALPROIC ACID [Suspect]
     Indication: EPILEPSY
     Dosage: 750 MG 2/D PO
     Route: 048
     Dates: end: 20060225
  5. VALPROIC ACID [Suspect]
     Indication: EPILEPSY
     Dosage: 500 MG 2/D PO
     Route: 048
     Dates: start: 20060226

REACTIONS (2)
  - DEPRESSED LEVEL OF CONSCIOUSNESS [None]
  - THROMBOCYTOPENIA [None]
